FAERS Safety Report 8135733-7 (Version None)
Quarter: 2012Q1

REPORT INFORMATION
  Report Type: 
  Country: None (occurrence: None)
  Receive Date: 20120214
  Receipt Date: 20120209
  Transmission Date: 20120608
  Serious: Yes (Death, Hospitalization)
  Sender: FDA-Public Use
  Company Number: JP-ABBOTT-11P-087-0885216-00

PATIENT
  Sex: Female
  Weight: 36 kg

DRUGS (6)
  1. SOLON [Suspect]
     Indication: RHINITIS
     Route: 048
     Dates: start: 20100806, end: 20101001
  2. CLARITHROMYCIN [Suspect]
     Indication: RHINITIS
     Dates: start: 20100802, end: 20101001
  3. MUCODYNE [Suspect]
     Indication: RHINITIS
     Route: 048
     Dates: start: 20100802, end: 20101001
  4. ZESULAN [Suspect]
     Indication: RHINITIS
     Route: 048
     Dates: start: 20100802, end: 20101001
  5. PROTECADIN [Suspect]
     Indication: RHINITIS
     Route: 048
     Dates: start: 20100802, end: 20101001
  6. PRONASE [Suspect]
     Indication: RHINITIS
     Route: 048
     Dates: start: 20100806, end: 20101001

REACTIONS (4)
  - HEPATITIS FULMINANT [None]
  - HEPATIC NECROSIS [None]
  - HEPATIC ENCEPHALOPATHY [None]
  - LIVER DISORDER [None]
